FAERS Safety Report 12742769 (Version 1)
Quarter: 2016Q3

REPORT INFORMATION
  Report Type: Spontaneous
  Country: FR (occurrence: FR)
  Receive Date: 20160914
  Receipt Date: 20160914
  Transmission Date: 20161109
  Serious: Yes (Other)
  Sender: FDA-Public Use
  Company Number: FR-009507513-1609FRA005063

PATIENT
  Age: 56 Year
  Sex: Female

DRUGS (1)
  1. FOSAVANCE [Suspect]
     Active Substance: ALENDRONATE SODIUM\CHOLECALCIFEROL
     Indication: OSTEOPOROSIS
     Dosage: 1 TABLET PER WEEK
     Route: 048
     Dates: start: 201509

REACTIONS (1)
  - Conjunctival haemorrhage [Recovered/Resolved]

NARRATIVE: CASE EVENT DATE: 201604
